FAERS Safety Report 13803435 (Version 2)
Quarter: 2017Q3

REPORT INFORMATION
  Report Type: Report from Study
  Country: US (occurrence: US)
  Receive Date: 20170728
  Receipt Date: 20170829
  Transmission Date: 20171127
  Serious: Yes (Hospitalization)
  Sender: FDA-Public Use
  Company Number: US-009507513-1707USA010280

PATIENT
  Age: 71 Year
  Sex: Female
  Weight: 61.6 kg

DRUGS (20)
  1. ATROVENT HFA [Concomitant]
     Active Substance: IPRATROPIUM BROMIDE
     Dosage: 2 PUFF, TID. ROUTE: REPORTED AS INTO THE LUNGS.
     Route: 055
  2. OLEUROPEIN [Concomitant]
     Dosage: 2 DF, UNK
     Route: 048
  3. TYLENOL [Concomitant]
     Active Substance: ACETAMINOPHEN
     Indication: PAIN
     Dosage: 2 TABLETS, Q6H AS NEEDED
     Route: 048
  4. ZINC (UNSPECIFIED) [Suspect]
     Active Substance: ZINC
  5. FLONASE [Concomitant]
     Active Substance: FLUTICASONE PROPIONATE
     Dosage: 2 SPRAY, QD
     Route: 045
  6. MOTRIN [Concomitant]
     Active Substance: IBUPROFEN
     Indication: PAIN
     Dosage: 600 MG, EVERY 6 HOURS, PRN
     Route: 048
  7. MEKINIST [Concomitant]
     Active Substance: TRAMETINIB DIMETHYL SULFOXIDE
     Dosage: 1 TABLET, QOD
     Route: 048
  8. MILK THISTLE [Concomitant]
     Active Substance: MILK THISTLE
     Route: 048
  9. IRISH MOSS [Concomitant]
     Dosage: 1 TSP, QD
     Route: 048
  10. ACLOVATE [Concomitant]
     Active Substance: ALCLOMETASONE DIPROPIONATE
     Dosage: APPLY TOPICALLY
     Route: 003
  11. CALCIUM CARBONATE. [Concomitant]
     Active Substance: CALCIUM CARBONATE
     Route: 048
  12. CHOLECALCIFEROL [Concomitant]
     Active Substance: CHOLECALCIFEROL
     Dosage: 3200 UNITS, QD
  13. DESOWEN [Concomitant]
     Active Substance: DESONIDE
     Dosage: APPLY TO CORNERS OF MOUTH
     Route: 061
  14. SODIUM FLUORIDE. [Concomitant]
     Active Substance: SODIUM FLUORIDE
     Dosage: PLACE ONTO TEETH, OVERNIGHT
     Route: 002
  15. TURKEY TAILS [Concomitant]
  16. ADVIL [Concomitant]
     Active Substance: IBUPROFEN
     Indication: PAIN
     Dosage: 600 MG, EVERY 6 HOURS, PRN
     Route: 048
  17. NIZORAL [Concomitant]
     Active Substance: KETOCONAZOLE
     Dosage: APPLY TO CORNERS OF MOUTH
     Route: 061
  18. TAFINLAR [Concomitant]
     Active Substance: DABRAFENIB MESYLATE
     Dosage: 1 CAPSULE, BID
     Route: 048
  19. PEMBROLIZUMAB. [Suspect]
     Active Substance: PEMBROLIZUMAB
     Indication: NON-SMALL CELL LUNG CANCER
     Dosage: 200 MG, Q3W
     Route: 042
     Dates: start: 20170717, end: 20170807
  20. ASCORBIC ACID. [Concomitant]
     Active Substance: ASCORBIC ACID
     Dosage: 3000 MG, QD
     Route: 048

REACTIONS (2)
  - Malignant neoplasm progression [Unknown]
  - Pleural effusion [Not Recovered/Not Resolved]

NARRATIVE: CASE EVENT DATE: 20170724
